FAERS Safety Report 6794049-1 (Version None)
Quarter: 2010Q2

REPORT INFORMATION
  Report Type: 
  Country: None (occurrence: None)
  Receive Date: 20100624
  Receipt Date: 20031119
  Transmission Date: 20101027
  Serious: No
  Sender: FDA-Public Use
  Company Number: US-PFIZER INC-23100337

PATIENT
  Age: 56 Year
  Sex: Male

DRUGS (5)
  1. ARGATROBAN [Suspect]
     Dates: start: 20031118
  2. DOXYCYCLINE [Concomitant]
  3. METRONIDAZOLE [Concomitant]
  4. GLUCOVANCE [Concomitant]
  5. K-DUR [Concomitant]

REACTIONS (1)
  - URTICARIA [None]
